FAERS Safety Report 26017736 (Version 2)
Quarter: 2025Q4

REPORT INFORMATION
  Report Type: Spontaneous
  Country: EU (occurrence: EU)
  Receive Date: 20251110
  Receipt Date: 20251114
  Transmission Date: 20260118
  Serious: Yes (Other)
  Sender: CELLTRION
  Company Number: EU-ABBVIE-6220489

PATIENT

DRUGS (5)
  1. ADALIMUMAB [Suspect]
     Active Substance: ADALIMUMAB
     Indication: Hidradenitis
     Dosage: 40 MG, EVERY 1 WEEK/40 MG, QW
     Route: 058
  2. ADALIMUMAB [Suspect]
     Active Substance: ADALIMUMAB
     Dosage: 40 MILLIGRAM, QWK
     Route: 065
  3. DOXYCYCLINE [Concomitant]
     Active Substance: DOXYCYCLINE
     Indication: Hidradenitis
     Route: 065
  4. RIFAMPIN [Concomitant]
     Active Substance: RIFAMPIN
     Indication: Hidradenitis
     Route: 065
  5. CLINDAMYCIN [Concomitant]
     Active Substance: CLINDAMYCIN
     Indication: Hidradenitis
     Route: 065

REACTIONS (6)
  - Metastases to lung [Recovering/Resolving]
  - Squamous cell carcinoma [Unknown]
  - Lung squamous cell carcinoma metastatic [Recovered/Resolved]
  - Hidradenitis [Recovered/Resolved]
  - Disease recurrence [Recovered/Resolved]
  - Acinetobacter test positive [Unknown]

NARRATIVE: CASE EVENT DATE: 20230101
